FAERS Safety Report 6936752-6 (Version None)
Quarter: 2010Q3

REPORT INFORMATION
  Report Type: 
  Country: None (occurrence: None)
  Receive Date: 20100818
  Receipt Date: 20100810
  Transmission Date: 20110219
  Serious: Yes (Hospitalization)
  Sender: FDA-Public Use
  Company Number: 1000014709

PATIENT
  Age: 52 Year
  Sex: Female
  Weight: 68.95 kg

DRUGS (21)
  1. SAVELLA [Suspect]
     Indication: FIBROMYALGIA
     Dosage: 12.5 MG (12.5 MG, 1 IN 1 D), ORAL; 25 MG (12.5 MG, 2 IN 1 D), ORAL; 50 MG (25 MG, 2 IN 1 D), ORAL
     Route: 048
     Dates: start: 20100512, end: 20100512
  2. SAVELLA [Suspect]
     Indication: FIBROMYALGIA
     Dosage: 12.5 MG (12.5 MG, 1 IN 1 D), ORAL; 25 MG (12.5 MG, 2 IN 1 D), ORAL; 50 MG (25 MG, 2 IN 1 D), ORAL
     Route: 048
     Dates: start: 20100513, end: 20100514
  3. SAVELLA [Suspect]
     Indication: FIBROMYALGIA
     Dosage: 12.5 MG (12.5 MG, 1 IN 1 D), ORAL; 25 MG (12.5 MG, 2 IN 1 D), ORAL; 50 MG (25 MG, 2 IN 1 D), ORAL
     Route: 048
     Dates: start: 20100515, end: 20100518
  4. SAVELLA [Suspect]
     Indication: FIBROMYALGIA
     Dosage: 100 MG (50 MG, 2 IN 1 D), ORAL
     Route: 048
     Dates: start: 20100519, end: 20100615
  5. LAMISIL [Suspect]
     Indication: ONYCHOMYCOSIS
     Dosage: 250 MG (250 MG, 1 IN 1 D)
     Dates: start: 20100409, end: 20100615
  6. ZOMIG [Concomitant]
  7. VOLTAREN [Concomitant]
  8. ZANAFLEX [Concomitant]
  9. TOPAMAX [Concomitant]
  10. DARVOCET-N 100 [Concomitant]
  11. WELCHOL (625 MILLIGRAM, TABLETS) [Concomitant]
  12. BENTYL (10 MILLIGRAM) [Concomitant]
  13. REGLAN [Concomitant]
  14. FLONASE [Concomitant]
  15. ESTRACE [Concomitant]
  16. VICODIN [Concomitant]
  17. TORADOL [Concomitant]
  18. ACIPHEX [Concomitant]
  19. PROAIR HFA [Concomitant]
  20. MELATONIN [Concomitant]
  21. VITAMIN D [Concomitant]

REACTIONS (8)
  - HAEMATOCRIT DECREASED [None]
  - HAEMOGLOBIN DECREASED [None]
  - HEPATITIS [None]
  - ORTHOSTATIC HYPOTENSION [None]
  - RED BLOOD CELL COUNT DECREASED [None]
  - RENAL FAILURE ACUTE [None]
  - SYNCOPE [None]
  - UPPER RESPIRATORY TRACT INFECTION [None]
